FAERS Safety Report 9655463 (Version 2)
Quarter: 2013Q4

REPORT INFORMATION
  Report Type: Spontaneous
  Country: US (occurrence: US)
  Receive Date: 20131029
  Receipt Date: 20131029
  Transmission Date: 20140711
  Serious: No
  Sender: FDA-Public Use
  Company Number: US-PURDUE-USA-2010-0056042

PATIENT
  Sex: Male

DRUGS (2)
  1. OXYCONTIN (NDA 22-272) [Suspect]
     Indication: PAIN
     Dosage: 360 MG, DAILY
     Dates: start: 201009
  2. OXYCONTIN (NDA 22-272) [Suspect]
     Dosage: 80 MG, BID
     Route: 048

REACTIONS (7)
  - Fluid retention [Unknown]
  - Headache [Unknown]
  - Fatigue [Unknown]
  - Inadequate analgesia [Unknown]
  - Drug effect delayed [Unknown]
  - Somnolence [Unknown]
  - Drug ineffective [Unknown]
